FAERS Safety Report 19092231 (Version 1)
Quarter: 2021Q2

REPORT INFORMATION
  Report Type: Spontaneous
  Country: JP (occurrence: JP)
  Receive Date: 20210405
  Receipt Date: 20210405
  Transmission Date: 20210717
  Serious: Yes (Other)
  Sender: FDA-Public Use
  Company Number: JP-MYLANLABS-2021M1019283

PATIENT
  Age: 68 Year
  Sex: Male

DRUGS (2)
  1. PREDNISOLONE. [Suspect]
     Active Substance: PREDNISOLONE
     Indication: AUTOIMMUNE PANCREATITIS
     Dosage: 30 MILLIGRAM, QD, LATER, THE DOSE WAS TAPERED BY 5MG EVERY 2 WEEK TO A MAINTENANCE DOSE OF 5 MG/DAY
     Route: 048
  2. PREDNISOLONE. [Suspect]
     Active Substance: PREDNISOLONE
     Indication: GASTRIC VARICES
     Dosage: 5 MILLIGRAM, QD, MAINTENANCE THERAPY WAS DISCONTINUED 5 MONTHS AFTER THE INITIAL TREATMENT
     Route: 048

REACTIONS (1)
  - Drug ineffective [Unknown]
